FAERS Safety Report 5090839-4 (Version None)
Quarter: 2006Q3

REPORT INFORMATION
  Report Type: 
  Country: None (occurrence: None)
  Receive Date: 20060823
  Receipt Date: 20060809
  Transmission Date: 20061208
  Serious: Yes (Other)
  Sender: FDA-Public Use
  Company Number: PHBS2006JP12149

PATIENT
  Age: 19 Year
  Sex: Female

DRUGS (1)
  1. LAMISIL [Suspect]
     Indication: FUNGAL SKIN INFECTION
     Dosage: AURICULAR
     Route: 001
     Dates: start: 20060724, end: 20060729

REACTIONS (2)
  - EAR PAIN [None]
  - TYMPANIC MEMBRANE PERFORATION [None]
